FAERS Safety Report 9809446 (Version 3)
Quarter: 2014Q3

REPORT INFORMATION
  Report Type: Spontaneous
  Country: US (occurrence: US)
  Receive Date: 20140110
  Receipt Date: 20140908
  Transmission Date: 20150326
  Serious: No
  Sender: FDA-Public Use
  Company Number: US-009507513-1401USA002647

PATIENT
  Sex: Female
  Weight: 88.44 kg

DRUGS (1)
  1. NUVARING [Suspect]
     Active Substance: ETHINYL ESTRADIOL\ETONOGESTREL
     Indication: CONTRACEPTION
     Dosage: UNK
     Route: 067
     Dates: start: 20100603

REACTIONS (8)
  - Insomnia [Unknown]
  - Deep vein thrombosis [Recovering/Resolving]
  - Anxiety [Unknown]
  - Fatigue [Unknown]
  - Drug dependence [Unknown]
  - Malaise [Unknown]
  - Abnormal weight gain [Unknown]
  - Eczema [Unknown]

NARRATIVE: CASE EVENT DATE: 20120124
